FAERS Safety Report 24622901 (Version 1)
Quarter: 2024Q4

REPORT INFORMATION
  Report Type: Spontaneous
  Country: US (occurrence: US)
  Receive Date: 20241115
  Receipt Date: 20241115
  Transmission Date: 20250114
  Serious: Yes (Other)
  Sender: BIOGEN
  Company Number: US-BIOGEN-2024BI01289854

PATIENT
  Sex: Female

DRUGS (1)
  1. TYSABRI [Suspect]
     Active Substance: NATALIZUMAB
     Indication: Multiple sclerosis
     Route: 050
     Dates: start: 20241018

REACTIONS (6)
  - Monoparesis [Unknown]
  - Influenza like illness [Unknown]
  - Back pain [Unknown]
  - Skin exfoliation [Unknown]
  - Fatigue [Unknown]
  - Pain in extremity [Unknown]
